FAERS Safety Report 15498800 (Version 1)
Quarter: 2018Q4

REPORT INFORMATION
  Report Type: Spontaneous
  Country: US (occurrence: US)
  Receive Date: 20181013
  Receipt Date: 20181013
  Transmission Date: 20190205
  Serious: Yes (Disabling)
  Sender: FDA-Public Use
  Company Number: None

PATIENT
  Age: 33 Year
  Sex: Female
  Weight: 66.22 kg

DRUGS (1)
  1. MIRENA [Suspect]
     Active Substance: LEVONORGESTREL
     Dates: start: 20180301, end: 20181013

REACTIONS (6)
  - Weight increased [None]
  - Product label issue [None]
  - Anorgasmia [None]
  - Loss of libido [None]
  - Depression [None]
  - Muscle spasms [None]

NARRATIVE: CASE EVENT DATE: 20181013
